FAERS Safety Report 6127894-6 (Version None)
Quarter: 2009Q1

REPORT INFORMATION
  Report Type: 
  Country: None (occurrence: None)
  Receive Date: 20090320
  Receipt Date: 20090320
  Transmission Date: 20090719
  Serious: No
  Sender: FDA-Public Use
  Company Number: None

PATIENT
  Age: 45 Year
  Sex: Male

DRUGS (2)
  1. HUMULIN 70/30 [Suspect]
     Dosage: DIFFERS 2 X DAY
     Dates: start: 19940101
  2. INSULIN REGULAR [Suspect]
     Dosage: 2 UNITS 1 AT NIGHT BETWEEN 2000-01?

REACTIONS (13)
  - ABDOMINAL DISTENSION [None]
  - ABNORMAL FAECES [None]
  - CONSTIPATION [None]
  - DYSPEPSIA [None]
  - FLATULENCE [None]
  - GASTROINTESTINAL DISORDER [None]
  - GASTROINTESTINAL MOTILITY DISORDER [None]
  - GASTROINTESTINAL SOUNDS ABNORMAL [None]
  - LACRIMATION INCREASED [None]
  - POLLAKIURIA [None]
  - RHINORRHOEA [None]
  - URINE ABNORMALITY [None]
  - WEIGHT DECREASED [None]
